FAERS Safety Report 20381991 (Version 1)
Quarter: 2022Q1

REPORT INFORMATION
  Report Type: Spontaneous
  Country: US (occurrence: None)
  Receive Date: 20220126
  Receipt Date: 20220126
  Transmission Date: 20220424
  Serious: Yes (Hospitalization)
  Sender: FDA-Public Use
  Company Number: None

PATIENT
  Age: 41 Year
  Sex: Female

DRUGS (1)
  1. HUMIRA [Suspect]
     Active Substance: ADALIMUMAB
     Route: 058
     Dates: start: 202105

REACTIONS (4)
  - Urinary tract infection [None]
  - Nephrolithiasis [None]
  - Sepsis [None]
  - Ureteral stent insertion [None]

NARRATIVE: CASE EVENT DATE: 20220117
